FAERS Safety Report 18030944 (Version 2)
Quarter: 2021Q3

REPORT INFORMATION
  Report Type: Spontaneous
  Country: US (occurrence: US)
  Receive Date: 20200716
  Receipt Date: 20210902
  Transmission Date: 20211014
  Serious: Yes (Death, Other)
  Sender: FDA-Public Use
  Company Number: US-GLAXOSMITHKLINE-US2020132797

PATIENT
  Sex: Female

DRUGS (14)
  1. RANITIDINE. [Suspect]
     Active Substance: RANITIDINE
     Indication: HIATUS HERNIA
  2. RANITIDINE CAPSULE [Suspect]
     Active Substance: RANITIDINE
     Indication: HIATUS HERNIA
  3. ZANTAC [Suspect]
     Active Substance: RANITIDINE HYDROCHLORIDE
     Indication: HIATUS HERNIA
  4. RANITIDINE. [Suspect]
     Active Substance: RANITIDINE
     Indication: GASTROOESOPHAGEAL REFLUX DISEASE
     Dosage: 150 MG, QD
     Route: 065
     Dates: start: 199701, end: 201901
  5. ZANTAC [Suspect]
     Active Substance: RANITIDINE HYDROCHLORIDE
     Indication: GASTROOESOPHAGEAL REFLUX DISEASE
     Dosage: 150 MG
     Route: 065
     Dates: start: 198301, end: 201901
  6. ZANTAC [Suspect]
     Active Substance: RANITIDINE HYDROCHLORIDE
     Indication: HIATUS HERNIA
  7. ZANTAC [Suspect]
     Active Substance: RANITIDINE HYDROCHLORIDE
     Indication: GASTROOESOPHAGEAL REFLUX DISEASE
     Dosage: 150 MG
     Route: 065
     Dates: start: 198301, end: 201901
  8. RANITIDINE CAPSULE [Suspect]
     Active Substance: RANITIDINE
     Indication: GASTROOESOPHAGEAL REFLUX DISEASE
     Dosage: 150 MG
     Route: 065
     Dates: start: 198301, end: 201901
  9. RANITIDINE. [Suspect]
     Active Substance: RANITIDINE
     Indication: GASTROOESOPHAGEAL REFLUX DISEASE
     Dosage: 150 MG, QD
     Route: 065
     Dates: start: 199701, end: 201901
  10. RANITIDINE HCI [Suspect]
     Active Substance: RANITIDINE HYDROCHLORIDE
  11. ZANTAC [Suspect]
     Active Substance: RANITIDINE HYDROCHLORIDE
  12. RANITIDINE. [Suspect]
     Active Substance: RANITIDINE
     Indication: HIATUS HERNIA
  13. ZANTAC [Suspect]
     Active Substance: RANITIDINE HYDROCHLORIDE
     Indication: GASTROOESOPHAGEAL REFLUX DISEASE
     Dosage: 150 MG
     Route: 065
     Dates: start: 198301, end: 201901
  14. ZANTAC [Suspect]
     Active Substance: RANITIDINE HYDROCHLORIDE
     Indication: HIATUS HERNIA

REACTIONS (4)
  - Pancreatic carcinoma [Fatal]
  - Hepatic cancer [Unknown]
  - Pancreatic carcinoma [Unknown]
  - Neoplasm malignant [Fatal]
